FAERS Safety Report 5878069-7 (Version None)
Quarter: 2008Q3

REPORT INFORMATION
  Report Type: 
  Country: None (occurrence: None)
  Receive Date: 20080911
  Receipt Date: 20080908
  Transmission Date: 20090109
  Serious: Yes (Life-Threatening, Hospitalization)
  Sender: FDA-Public Use
  Company Number: DE-BRISTOL-MYERS SQUIBB COMPANY-14305130

PATIENT
  Age: 49 Year
  Sex: Male
  Weight: 83 kg

DRUGS (3)
  1. CETUXIMAB [Suspect]
     Indication: NON-SMALL CELL LUNG CANCER
     Dosage: THERAPY START;17-JUL-2008, STOPPED ON 13-AUG-2008,RESTARTED ON 21-AUG-2008; DOSE REDUCED
     Route: 040
     Dates: start: 20080807, end: 20080807
  2. CARBOPLATIN [Suspect]
     Indication: NON-SMALL CELL LUNG CANCER
     Dosage: THERAPY START;17-JUL-2008, DOSE REDUCED FROM AUC5 TO AUC3
     Route: 042
     Dates: start: 20080807, end: 20080807
  3. GEMCITABINE [Suspect]
     Indication: NON-SMALL CELL LUNG CANCER
     Dosage: THERAPY START 17-JUL-2008; DOSE DELAYED BUT WAS UNCHANGED. LAST TX PRIOR TO EVENT NOT PROVIDED
     Route: 042
     Dates: start: 20080717

REACTIONS (4)
  - NEOPLASM PROGRESSION [None]
  - PERICARDIAL EFFUSION [None]
  - PLEURAL EFFUSION [None]
  - THROMBOCYTOPENIA [None]
